FAERS Safety Report 6769300-4 (Version None)
Quarter: 2010Q2

REPORT INFORMATION
  Report Type: 
  Country: None (occurrence: None)
  Receive Date: 20100615
  Receipt Date: 20100608
  Transmission Date: 20101027
  Serious: Yes (Death, Other)
  Sender: FDA-Public Use
  Company Number: FR-ELI_LILLY_AND_COMPANY-FR201005000609

PATIENT
  Age: 63 Year
  Sex: Male
  Weight: 77 kg

DRUGS (11)
  1. UMULINE REGULAR [Suspect]
     Dosage: 340 IU, EVERY HOUR
     Dates: start: 20100502
  2. UMULINE REGULAR [Suspect]
     Dosage: 400 IU, EVERY HOUR
     Dates: start: 20100504
  3. UMULINE REGULAR [Suspect]
     Dosage: 500 IU, EVERY HOUR
     Dates: start: 20100501
  4. UMULINE REGULAR [Suspect]
     Dosage: 1200 IU, EVERY HOUR
     Dates: start: 20100505
  5. NEXIUM [Concomitant]
     Dosage: 40 MG, UNK
  6. ERYTHROCINE [Concomitant]
     Dosage: 100 MG, 4/D
  7. NORADRENALINE [Concomitant]
  8. TERCIAN [Concomitant]
     Dosage: 10 GTT, 3/D
  9. ASPIRIN [Concomitant]
     Dosage: 160 MG, DAILY (1/D)
  10. KETAMINE [Concomitant]
     Dosage: 2 MG, EVERY HOUR
  11. HYDROCORTISONE SODIUM SUCCINATE [Concomitant]
     Dosage: 200 MG, DAILY (1/D)

REACTIONS (5)
  - BLOOD CREATININE INCREASED [None]
  - BLOOD GLUCOSE INCREASED [None]
  - DEATH [None]
  - DRUG INEFFECTIVE [None]
  - PO2 DECREASED [None]
